FAERS Safety Report 6335789-8 (Version None)
Quarter: 2009Q3

REPORT INFORMATION
  Report Type: 
  Country: None (occurrence: None)
  Receive Date: 20090828
  Receipt Date: 20090821
  Transmission Date: 20100115
  Serious: Yes (Hospitalization)
  Sender: FDA-Public Use
  Company Number: 362559

PATIENT
  Age: 54 Year
  Sex: Female

DRUGS (6)
  1. CYTARABINE [Suspect]
     Indication: ACUTE MYELOID LEUKAEMIA
  2. FLUDARABINE PHOSPHATE [Suspect]
     Indication: ACUTE MYELOID LEUKAEMIA
  3. IDARUBICIN HCL [Suspect]
     Indication: ACUTE MYELOID LEUKAEMIA
  4. (ALEMTUZUMAB) [Concomitant]
  5. (CIFOFOVIR) [Concomitant]
  6. CYCLOSPORINE [Concomitant]

REACTIONS (22)
  - ADENOVIRUS INFECTION [None]
  - BONE MARROW FAILURE [None]
  - CARDIAC FAILURE CONGESTIVE [None]
  - CONGESTIVE CARDIOMYOPATHY [None]
  - DIARRHOEA [None]
  - DYSPNOEA [None]
  - EJECTION FRACTION DECREASED [None]
  - EPSTEIN-BARR VIRUS INFECTION [None]
  - HAEMOGLOBIN DECREASED [None]
  - HYPOKALAEMIA [None]
  - HYPOMAGNESAEMIA [None]
  - INFECTION IN AN IMMUNOCOMPROMISED HOST [None]
  - MYOCARDITIS [None]
  - OROPHARYNGEAL PAIN [None]
  - PARVOVIRUS INFECTION [None]
  - PLATELET COUNT DECREASED [None]
  - PLEURAL EFFUSION [None]
  - SERUM FERRITIN INCREASED [None]
  - SINUS TACHYCARDIA [None]
  - TRANSAMINASES INCREASED [None]
  - VOMITING [None]
  - WHITE BLOOD CELL COUNT DECREASED [None]
